FAERS Safety Report 9280531 (Version 1)
Quarter: 2013Q2

REPORT INFORMATION
  Report Type: Spontaneous
  Country: CO (occurrence: CO)
  Receive Date: 20130509
  Receipt Date: 20130509
  Transmission Date: 20140414
  Serious: Yes (Death)
  Sender: FDA-Public Use
  Company Number: CO-UCBSA-085168

PATIENT
  Sex: Male

DRUGS (3)
  1. VIMPAT [Suspect]
     Indication: EPILEPSY
     Route: 048
     Dates: start: 201112, end: 20121220
  2. CLONAZEPAM [Concomitant]
  3. CARBAMAZEPINE [Concomitant]

REACTIONS (1)
  - Pneumonia [Fatal]
